FAERS Safety Report 9578188 (Version 1)
Quarter: 2013Q4

REPORT INFORMATION
  Report Type: Spontaneous
  Country: US (occurrence: US)
  Receive Date: 20131001
  Receipt Date: 20131001
  Transmission Date: 20140711
  Serious: No
  Sender: FDA-Public Use
  Company Number: US-AMGEN-USASP2013011678

PATIENT
  Sex: Male
  Weight: 99.77 kg

DRUGS (4)
  1. ENBREL [Suspect]
     Dosage: UNK
     Dates: end: 201209
  2. ADVAIR [Concomitant]
     Dosage: UNK
  3. COUMADIN                           /00014802/ [Concomitant]
     Dosage: UNK
  4. SINGULAIR [Concomitant]
     Dosage: UNK

REACTIONS (1)
  - Drug ineffective [Unknown]
